FAERS Safety Report 7187111-5 (Version None)
Quarter: 2010Q4

REPORT INFORMATION
  Report Type: 
  Country: None (occurrence: None)
  Receive Date: 20101222
  Receipt Date: 20101209
  Transmission Date: 20110411
  Serious: Yes (Other)
  Sender: FDA-Public Use
  Company Number: GB-BAUSCH-2010BL007014

PATIENT
  Age: 50 Year
  Sex: Male

DRUGS (10)
  1. PREDNISOLONE [Suspect]
     Indication: IMMUNOSUPPRESSION
     Route: 048
     Dates: start: 19980101
  2. ALFACALCIDOL [Concomitant]
  3. ATENOLOL [Concomitant]
  4. AZATHIOPRINE [Concomitant]
     Indication: IMMUNOSUPPRESSION
  5. CANDESARTAN [Concomitant]
  6. CYCLOSPORINE [Concomitant]
     Indication: IMMUNOSUPPRESSION
  7. CINACALCET [Concomitant]
  8. DARBEPOETIN ALFA [Concomitant]
  9. FUROSEMIDE [Concomitant]
  10. SIMVASTATIN [Concomitant]

REACTIONS (2)
  - BLINDNESS UNILATERAL [None]
  - CHORIORETINOPATHY [None]
